FAERS Safety Report 13164705 (Version 1)
Quarter: 2017Q1

REPORT INFORMATION
  Report Type: Spontaneous
  Country: US (occurrence: US)
  Receive Date: 20170130
  Receipt Date: 20170130
  Transmission Date: 20170428
  Serious: Yes (Hospitalization, Other)
  Sender: FDA-Public Use
  Company Number: US-PFIZER INC-2017033954

PATIENT
  Age: 90 Year
  Sex: Female
  Weight: 62 kg

DRUGS (3)
  1. IBRANCE [Suspect]
     Active Substance: PALBOCICLIB
     Indication: BREAST CANCER
     Dosage: 100 MG, 1X/DAY
     Dates: end: 20161229
  2. LETROZOLE. [Suspect]
     Active Substance: LETROZOLE
     Indication: BREAST CANCER
     Dosage: UNK UNK, 1X/DAY
     Route: 048
  3. IBRANCE [Suspect]
     Active Substance: PALBOCICLIB
     Dosage: 100 MG, 1X/DAY
     Dates: start: 20170101, end: 201701

REACTIONS (7)
  - Hip fracture [Unknown]
  - Haematemesis [Recovered/Resolved]
  - Malaise [Unknown]
  - Haemoglobin increased [Unknown]
  - Intentional product misuse [Unknown]
  - Ulcer [Unknown]
  - Haematochezia [Unknown]

NARRATIVE: CASE EVENT DATE: 201701
